FAERS Safety Report 6599580-X (Version None)
Quarter: 2010Q1

REPORT INFORMATION
  Report Type: 
  Country: None (occurrence: None)
  Receive Date: 20100224
  Receipt Date: 20100210
  Transmission Date: 20100710
  Serious: Yes (Hospitalization, Other)
  Sender: FDA-Public Use
  Company Number: JP-ROCHE-686338

PATIENT
  Sex: Female

DRUGS (2)
  1. CELLCEPT [Suspect]
     Indication: PROPHYLAXIS AGAINST TRANSPLANT REJECTION
     Route: 048
  2. CYCLOSPORINE [Concomitant]
     Route: 048

REACTIONS (6)
  - DIARRHOEA [None]
  - INTRA-UTERINE DEATH [None]
  - NAUSEA [None]
  - PREGNANCY [None]
  - PYREXIA [None]
  - VOMITING [None]
